FAERS Safety Report 11768946 (Version 4)
Quarter: 2016Q2

REPORT INFORMATION
  Report Type: Spontaneous
  Country: US (occurrence: US)
  Receive Date: 20151123
  Receipt Date: 20160404
  Transmission Date: 20160815
  Serious: Yes (Hospitalization)
  Sender: FDA-Public Use
  Company Number: US-PFIZER INC-2015398813

PATIENT
  Age: 51 Year
  Sex: Male
  Weight: 60 kg

DRUGS (5)
  1. PLAVIX [Concomitant]
     Active Substance: CLOPIDOGREL BISULFATE
     Dosage: UNK
  2. ALPRAZOLAM. [Suspect]
     Active Substance: ALPRAZOLAM
     Indication: CHEST PAIN
     Dosage: 1 MG TABLET, 2 TABLETS IN THE MORNING, 1 TABLET AT BEDTIME, 2X/DAY
     Route: 048
     Dates: start: 1999
  3. ALPRAZOLAM. [Suspect]
     Active Substance: ALPRAZOLAM
     Indication: PANIC ATTACK
  4. ALPRAZOLAM. [Suspect]
     Active Substance: ALPRAZOLAM
     Indication: ANXIETY
  5. ASPIRIN. [Concomitant]
     Active Substance: ASPIRIN
     Dosage: 325 MG, 1X/DAY

REACTIONS (5)
  - Pre-existing condition improved [Not Recovered/Not Resolved]
  - Myocardial infarction [Recovering/Resolving]
  - Intentional product misuse [Unknown]
  - Therapeutic response unexpected [Not Recovered/Not Resolved]
  - Panic attack [Recovered/Resolved]

NARRATIVE: CASE EVENT DATE: 1999
